FAERS Safety Report 5138801-7 (Version None)
Quarter: 2006Q4

REPORT INFORMATION
  Report Type: 
  Country: None (occurrence: None)
  Receive Date: 20061030
  Receipt Date: 20061024
  Transmission Date: 20070319
  Serious: Yes (Life-Threatening)
  Sender: FDA-Public Use
  Company Number: 2006SE05801

PATIENT
  Age: 53 Year
  Sex: Male
  Weight: 86 kg

DRUGS (3)
  1. CRESTOR [Suspect]
     Indication: HYPERCHOLESTEROLAEMIA
     Route: 048
  2. NEBIVOLOL HCL [Concomitant]
  3. PERINDOPRIL ERBUMINE [Concomitant]

REACTIONS (2)
  - CEREBROVASCULAR DISORDER [None]
  - CEREBROVASCULAR STENOSIS [None]
